FAERS Safety Report 5393345-2 (Version None)
Quarter: 2007Q3

REPORT INFORMATION
  Report Type: 
  Country: None (occurrence: None)
  Receive Date: 20070723
  Receipt Date: 20070713
  Transmission Date: 20080115
  Serious: Yes (Other)
  Sender: FDA-Public Use
  Company Number: PHBS2007AT10878

PATIENT
  Sex: Male

DRUGS (5)
  1. GLEEVEC [Suspect]
     Indication: METASTASES TO STOMACH
     Dosage: 400 MG, BID
     Route: 065
     Dates: start: 20070330
  2. BISOCOR [Concomitant]
     Dosage: 10 MG/D
     Route: 048
  3. DIOVAN HCT [Concomitant]
     Dosage: 160 MG/D
     Route: 048
  4. ASPIRIN [Concomitant]
     Dosage: 100 MG/D
     Route: 048
  5. LIPCOR [Concomitant]
     Dosage: 200 MG/D
     Route: 048

REACTIONS (1)
  - ANAL FISTULA [None]
